FAERS Safety Report 7322786-9 (Version None)
Quarter: 2011Q1

REPORT INFORMATION
  Report Type: 
  Country: None (occurrence: None)
  Receive Date: 20110301
  Receipt Date: 20110217
  Transmission Date: 20110831
  Serious: Yes (Other)
  Sender: FDA-Public Use
  Company Number: IL-JNJFOC-20110206314

PATIENT
  Age: 26 Year
  Sex: Male

DRUGS (1)
  1. CONCERTA [Suspect]
     Indication: ATTENTION DEFICIT/HYPERACTIVITY DISORDER
     Route: 048

REACTIONS (7)
  - TENSION [None]
  - AGITATION [None]
  - DISTRACTIBILITY [None]
  - DRUG DEPENDENCE [None]
  - AGGRESSION [None]
  - DRUG DOSE OMISSION [None]
  - NERVOUSNESS [None]
